FAERS Safety Report 6330757-4 (Version None)
Quarter: 2009Q3

REPORT INFORMATION
  Report Type: 
  Country: None (occurrence: None)
  Receive Date: 20090827
  Receipt Date: 20090826
  Transmission Date: 20100115
  Serious: Yes (Other)
  Sender: FDA-Public Use
  Company Number: FI-RB-017412-09

PATIENT
  Age: 27 Year
  Sex: Male

DRUGS (4)
  1. SUBOXONE [Suspect]
     Indication: DRUG THERAPY
     Route: 065
     Dates: start: 20090504
  2. SUBOXONE [Suspect]
     Route: 065
  3. DORMICUM [Suspect]
     Indication: DRUG USE FOR UNKNOWN INDICATION
     Route: 065
  4. XANOR [Suspect]
     Indication: DRUG USE FOR UNKNOWN INDICATION
     Route: 065

REACTIONS (3)
  - LOCAL SWELLING [None]
  - SUBSTANCE ABUSE [None]
  - THYROID CANCER [None]
